FAERS Safety Report 21535871 (Version 1)
Quarter: 2022Q4

REPORT INFORMATION
  Report Type: Report from Study
  Country: US (occurrence: US)
  Receive Date: 20221101
  Receipt Date: 20221101
  Transmission Date: 20230112
  Serious: No
  Sender: FDA-Public Use
  Company Number: US-ABBVIE-22K-163-4522756-00

PATIENT
  Sex: Male

DRUGS (2)
  1. SKYRIZI [Suspect]
     Active Substance: RISANKIZUMAB-RZAA
     Indication: Psoriasis
     Dosage: STRENGTH: 150MG
     Route: 058
  2. COVID-19 VACCINE [Concomitant]
     Indication: COVID-19 immunisation
     Dosage: TIME INTERVAL: 1 TOTAL
     Route: 030

REACTIONS (7)
  - Diabetes mellitus [Unknown]
  - Fatigue [Unknown]
  - Rhinorrhoea [Recovering/Resolving]
  - Cough [Recovered/Resolved]
  - Exposure to SARS-CoV-2 [Unknown]
  - Arthralgia [Recovering/Resolving]
  - Injection site pain [Recovering/Resolving]

NARRATIVE: CASE EVENT DATE: 20220101
